FAERS Safety Report 6531834-5 (Version None)
Quarter: 2010Q1

REPORT INFORMATION
  Report Type: 
  Country: None (occurrence: None)
  Receive Date: 20100107
  Receipt Date: 20100107
  Transmission Date: 20100710
  Serious: No
  Sender: FDA-Public Use
  Company Number: None

PATIENT
  Sex: Female
  Weight: 79.3795 kg

DRUGS (2)
  1. YASMIN [Suspect]
     Indication: CONTRACEPTION
     Dosage: 1 TABLET ONCE A DAY PO
     Route: 048
     Dates: start: 20020201, end: 20030610
  2. YAZ [Concomitant]

REACTIONS (6)
  - ABDOMINAL PAIN UPPER [None]
  - CHOLECYSTECTOMY [None]
  - DIARRHOEA [None]
  - FEELING ABNORMAL [None]
  - PYREXIA [None]
  - WEIGHT INCREASED [None]
